FAERS Safety Report 7640231-0 (Version None)
Quarter: 2011Q3

REPORT INFORMATION
  Report Type: 
  Country: None (occurrence: None)
  Receive Date: 20110728
  Receipt Date: 20110720
  Transmission Date: 20111222
  Serious: Yes (Hospitalization, Disabling, Other)
  Sender: FDA-Public Use
  Company Number: US-BAYER-2011-056529

PATIENT
  Age: 58 Year
  Sex: Female

DRUGS (1)
  1. BETASERON [Suspect]
     Indication: RELAPSING-REMITTING MULTIPLE SCLEROSIS
     Dosage: 8 MIU, QOD
     Route: 058
     Dates: start: 20110511, end: 20110719

REACTIONS (10)
  - HEART RATE IRREGULAR [None]
  - ABASIA [None]
  - URINARY TRACT INFECTION [None]
  - LIP INJURY [None]
  - HYPOTENSION [None]
  - ASTHENIA [None]
  - GAIT DISTURBANCE [None]
  - RENAL DISORDER [None]
  - FALL [None]
  - LABILE BLOOD PRESSURE [None]
